FAERS Safety Report 10189729 (Version 1)
Quarter: 2014Q2

REPORT INFORMATION
  Report Type: Spontaneous
  Country: US (occurrence: US)
  Receive Date: 20140522
  Receipt Date: 20140522
  Transmission Date: 20141212
  Serious: Yes (Other)
  Sender: FDA-Public Use
  Company Number: US-SA-2013SA105261

PATIENT
  Age: 75 Year
  Sex: Female

DRUGS (2)
  1. LANTUS SOLOSTAR [Suspect]
     Indication: TYPE 2 DIABETES MELLITUS
     Route: 058
  2. SOLOSTAR [Concomitant]
     Indication: TYPE 2 DIABETES MELLITUS

REACTIONS (1)
  - Urinary tract infection [Unknown]
